FAERS Safety Report 15377922 (Version 1)
Quarter: 2018Q3

REPORT INFORMATION
  Report Type: Spontaneous
  Country: US (occurrence: US)
  Receive Date: 20180913
  Receipt Date: 20180913
  Transmission Date: 20181010
  Serious: No
  Sender: FDA-Public Use
  Company Number: US-TEVA-2018-US-954243

PATIENT
  Sex: Male

DRUGS (9)
  1. AUSTEDO [Suspect]
     Active Substance: DEUTETRABENAZINE
     Dosage: 42 MILLIGRAM DAILY; ONE 12MG TAB / ONE 9MG TAB
     Route: 048
  2. HYDROXYCHOLORQUINE [Concomitant]
  3. AUSTEDO [Suspect]
     Active Substance: DEUTETRABENAZINE
     Dosage: 24 MILLIGRAM DAILY;
  4. LATANOPROST. [Concomitant]
     Active Substance: LATANOPROST
  5. TAMSULOSIN [Concomitant]
     Active Substance: TAMSULOSIN
  6. ANDROGEL [Concomitant]
     Active Substance: TESTOSTERONE
  7. DIAZEPAM. [Concomitant]
     Active Substance: DIAZEPAM
  8. TRAZODONE [Concomitant]
     Active Substance: TRAZODONE HYDROCHLORIDE
  9. IBUPROFEN. [Concomitant]
     Active Substance: IBUPROFEN

REACTIONS (2)
  - Muscle twitching [Unknown]
  - Therapy change [Unknown]
